FAERS Safety Report 6465794-2 (Version None)
Quarter: 2009Q4

REPORT INFORMATION
  Report Type: 
  Country: None (occurrence: None)
  Receive Date: 20091201
  Receipt Date: 20081107
  Transmission Date: 20100525
  Serious: No
  Sender: FDA-Public Use
  Company Number: US-AMGEN-KDL317968

PATIENT
  Sex: Female

DRUGS (2)
  1. ENBREL [Suspect]
     Indication: PSORIATIC ARTHROPATHY
     Route: 058
     Dates: start: 20080523
  2. SULFASALAZINE [Concomitant]
     Route: 048

REACTIONS (6)
  - ASTHENIA [None]
  - COUGH [None]
  - HEADACHE [None]
  - OROPHARYNGEAL PAIN [None]
  - PYREXIA [None]
  - UPPER RESPIRATORY TRACT CONGESTION [None]
